FAERS Safety Report 16088128 (Version 1)
Quarter: 2019Q1

REPORT INFORMATION
  Report Type: Spontaneous
  Country: US (occurrence: US)
  Receive Date: 20190319
  Receipt Date: 20190319
  Transmission Date: 20190418
  Serious: Yes (Life-Threatening, Hospitalization, Other)
  Sender: FDA-Public Use
  Company Number: US-AUROBINDO-AUR-APL-2019-013937

PATIENT

DRUGS (3)
  1. CLINDAMYCIN. [Suspect]
     Active Substance: CLINDAMYCIN
     Indication: OSTEOMYELITIS CHRONIC
     Dosage: 600 MILLIGRAM, 3 TIMES A DAY
     Route: 048
  2. CLINDAMYCIN. [Suspect]
     Active Substance: CLINDAMYCIN
     Indication: DIABETIC FOOT
  3. INSULIN GLARGINE [Concomitant]
     Active Substance: INSULIN GLARGINE
     Indication: TYPE 2 DIABETES MELLITUS
     Dosage: UNK
     Route: 065

REACTIONS (10)
  - Asthenia [Unknown]
  - Hyperkalaemia [Recovering/Resolving]
  - Decreased appetite [Unknown]
  - Nausea [Unknown]
  - Proteinuria [Recovering/Resolving]
  - Acute kidney injury [Recovering/Resolving]
  - Metabolic acidosis [Unknown]
  - Haematuria [Recovering/Resolving]
  - Disease progression [Unknown]
  - Urine output decreased [Recovering/Resolving]
